FAERS Safety Report 6673860-1 (Version None)
Quarter: 2010Q2

REPORT INFORMATION
  Report Type: 
  Country: None (occurrence: None)
  Receive Date: 20100407
  Receipt Date: 20100323
  Transmission Date: 20101027
  Serious: Yes (Death, Other)
  Sender: FDA-Public Use
  Company Number: KADN20100075

PATIENT
  Age: 47 Year
  Sex: Male
  Weight: 92.5338 kg

DRUGS (6)
  1. MORPHINE [Suspect]
     Indication: DRUG USE FOR UNKNOWN INDICATION
     Dates: end: 20080101
  2. OXYCODONE AND ACETAMINOPHEN [Suspect]
     Indication: DRUG USE FOR UNKNOWN INDICATION
     Dates: end: 20080101
  3. FLUOXETINE [Suspect]
     Indication: DRUG USE FOR UNKNOWN INDICATION
     Dates: end: 20080101
  4. CYCLOBENZAPRINE [Suspect]
     Indication: DRUG USE FOR UNKNOWN INDICATION
     Dates: end: 20080101
  5. DOXEPIN HCL [Concomitant]
  6. DIPHENHYDRAMINE HYDROCHLORIDE [Concomitant]

REACTIONS (4)
  - ACCIDENTAL DEATH [None]
  - DRUG ABUSE [None]
  - DRUG TOXICITY [None]
  - SCAR [None]
